FAERS Safety Report 5779546-X (Version None)
Quarter: 2008Q2

REPORT INFORMATION
  Report Type: 
  Country: None (occurrence: None)
  Receive Date: 20080616
  Receipt Date: 20080605
  Transmission Date: 20081010
  Serious: Yes (Other)
  Sender: FDA-Public Use
  Company Number: GXKR2008GB05124

PATIENT
  Age: 75 Year
  Sex: Female
  Weight: 61.8 kg

DRUGS (14)
  1. CLARITHROMYCIN [Suspect]
     Indication: BRONCHITIS
     Dosage: 1 DF, BID, ORAL
     Route: 048
     Dates: start: 20080218, end: 20080225
  2. ADCAL-D3         (CALCIUM CARBONATE, COLECALCIFEROL) [Concomitant]
  3. AQUEOUS CREAM (EMULSIFYING WAX, PARAFFIN, LIQUID, WHITE SOFT PARAFFIN) [Concomitant]
  4. ACETYLSALICYLIC ACID SRT [Concomitant]
  5. CHLORAMPHENICOL [Concomitant]
  6. CINNARIZINE (CINNARIZINE) [Concomitant]
  7. DIPYRIDAMOLE [Concomitant]
  8. DOXYCYCLINE HYCLATE (DOXYCYCLINE HYCLATE) [Concomitant]
  9. EZETIMIBE [Concomitant]
  10. GLUCOSAMINE SULFATE (GLUCOSAMINE SULFATE) [Concomitant]
  11. MOVICOL (MACROGOL, POTASSIUM CHLORIDE, SODIUM BICARBONATE, SODIUM CHLO [Concomitant]
  12. ACETAMINOPHEN [Concomitant]
  13. RAMIPRIL [Concomitant]
  14. SIMVASTATIN [Concomitant]

REACTIONS (1)
  - ANOSMIA [None]
